FAERS Safety Report 7880393-3 (Version None)
Quarter: 2011Q4

REPORT INFORMATION
  Report Type: 
  Country: None (occurrence: None)
  Receive Date: 20111101
  Receipt Date: 20111019
  Transmission Date: 20120403
  Serious: Yes (Other)
  Sender: FDA-Public Use
  Company Number: PHHY2011JP92871

PATIENT
  Age: 63 Year
  Sex: Female

DRUGS (1)
  1. CYCLOSPORINE [Suspect]
     Indication: INTERSTITIAL LUNG DISEASE
     Dosage: UNK UKN, UNK

REACTIONS (5)
  - LIVER DISORDER [None]
  - CYTOMEGALOVIRUS VIRAEMIA [None]
  - VIRAL INFECTION [None]
  - HEPATIC STEATOSIS [None]
  - HYPERLIPIDAEMIA [None]
